FAERS Safety Report 15251206 (Version 2)
Quarter: 2018Q3

REPORT INFORMATION
  Report Type: Spontaneous
  Country: US (occurrence: US)
  Receive Date: 20180807
  Receipt Date: 20180918
  Transmission Date: 20181010
  Serious: Yes (Other)
  Sender: FDA-Public Use
  Company Number: US-ASTRAZENECA-2018SF00095

PATIENT
  Age: 23605 Day
  Sex: Male
  Weight: 90.7 kg

DRUGS (22)
  1. ALBUTEROL. [Concomitant]
     Active Substance: ALBUTEROL
     Dosage: 0.083% INHAL SOLN 2.5 MG /3 ML (0.083 %), INHALE 1 VIAL FOUR TIMES A DAY
  2. OMEPRAZOLE. [Concomitant]
     Active Substance: OMEPRAZOLE
  3. GEMFIBROZIL. [Concomitant]
     Active Substance: GEMFIBROZIL
  4. NIACIN. [Concomitant]
     Active Substance: NIACIN
  5. AYR SALINE [Concomitant]
     Dosage: USE AS DIRECTED
     Route: 045
  6. ADVAIR HFA [Concomitant]
     Active Substance: FLUTICASONE PROPIONATE\SALMETEROL XINAFOATE
     Dosage: 500?50 DISKUS MCG/DOSE, 1 PUFF DAILY
  7. FLUOROPLEX [Concomitant]
     Active Substance: FLUOROURACIL
     Dosage: 1% CREAM
  8. DEXAMETHASONE. [Concomitant]
     Active Substance: DEXAMETHASONE
     Dosage: ONE TAB 2 TIMES A DAY AS DIRECTED
  9. DECADRON [Concomitant]
     Active Substance: DEXAMETHASONE
  10. PROAIR HFA [Concomitant]
     Active Substance: ALBUTEROL SULFATE
     Dosage: 90 MEG INHALER MEG/ACTUATION , 2 PUFFS EVERY 4?6 HOURS AS NEEDED
  11. DOXYCYCLINE HYCLATE. [Concomitant]
     Active Substance: DOXYCYCLINE HYCLATE
  12. METFORMIN [Concomitant]
     Active Substance: METFORMIN HYDROCHLORIDE
  13. XOLAIR [Concomitant]
     Active Substance: OMALIZUMAB
     Dosage: 150 MG VIAL, 375 MG Q 2 WEEKS
  14. PEPCID [Concomitant]
     Active Substance: FAMOTIDINE
     Route: 048
  15. IBUPROFEN. [Concomitant]
     Active Substance: IBUPROFEN
  16. FASENRA [Suspect]
     Active Substance: BENRALIZUMAB
     Indication: ASTHMA
     Route: 058
     Dates: start: 20180731
  17. DYMISTA [Concomitant]
     Active Substance: AZELASTINE HYDROCHLORIDE\FLUTICASONE PROPIONATE
     Dosage: 137?50 MEG/SPRAY, 1 SEN BID
  18. FLONASE [Concomitant]
     Active Substance: FLUTICASONE PROPIONATE
  19. FISH OIL [Concomitant]
     Active Substance: FISH OIL
  20. ZYRTEC [Concomitant]
     Active Substance: CETIRIZINE HYDROCHLORIDE
     Route: 048
  21. SINGULAIR [Concomitant]
     Active Substance: MONTELUKAST SODIUM
  22. EPIPEN [Concomitant]
     Active Substance: EPINEPHRINE
     Dosage: 0.3 MG AUTO?INJECTOR MG/0.3 ML, USE AS DIRECTED FOR ACUTE ALLERGIC REACTIONS: (1) 2?PACK TO CARRY...

REACTIONS (3)
  - Headache [Recovered/Resolved]
  - Pyrexia [Not Recovered/Not Resolved]
  - Chills [Recovered/Resolved]

NARRATIVE: CASE EVENT DATE: 20180731
